FAERS Safety Report 8915340 (Version 2)
Quarter: 2012Q4

REPORT INFORMATION
  Report Type: 
  Country: US (occurrence: US)
  Receive Date: 20121119
  Receipt Date: 20121121
  Transmission Date: 20130627
  Serious: Yes (Other)
  Sender: FDA-Public Use
  Company Number: US-PFIZER INC-2012287584

PATIENT
  Sex: Male

DRUGS (4)
  1. ZOLOFT [Suspect]
     Indication: DEPRESSION
     Dosage: 25 mg, 1x/day
     Route: 048
     Dates: start: 201109
  2. ZOLOFT [Suspect]
     Dosage: 50 mg, 1x/day
     Route: 048
  3. ZOLOFT [Suspect]
     Dosage: 100 mg, 1x/day
     Route: 048
  4. ZOLOFT [Suspect]
     Dosage: 200 mg, 1x/day
     Route: 048

REACTIONS (8)
  - Serotonin syndrome [Recovered/Resolved]
  - Muscle twitching [Recovered/Resolved]
  - Tremor [Recovered/Resolved]
  - Drug dose omission [Unknown]
  - Feeling abnormal [Recovered/Resolved]
  - Loss of consciousness [Not Recovered/Not Resolved]
  - Blood cholesterol increased [Unknown]
  - Discomfort [Not Recovered/Not Resolved]
